FAERS Safety Report 8801788 (Version 1)
Quarter: 2012Q4

REPORT INFORMATION
  Report Type: 
  Country: US (occurrence: US)
  Receive Date: 20120921
  Receipt Date: 20120921
  Transmission Date: 20130627
  Serious: No
  Sender: FDA-Public Use
  Company Number: US-ASTRAZENECA-2012SE70759

PATIENT
  Age: 66 Year
  Sex: Female
  Weight: 65.8 kg

DRUGS (13)
  1. LISINOPRIL [Suspect]
     Indication: HYPERTENSION
     Route: 048
  2. ALBUTEROL [Concomitant]
     Indication: ASTHMA
  3. ALBUTEROL [Concomitant]
     Indication: CHRONIC OBSTRUCTIVE PULMONARY DISEASE
  4. DITALAZAM [Concomitant]
     Indication: HYPERTENSION
  5. ATIVAN [Concomitant]
     Indication: ANXIETY
  6. BUPROPIONE [Concomitant]
     Indication: DEPRESSION
  7. PEPCID AC [Concomitant]
     Indication: GASTROOESOPHAGEAL REFLUX DISEASE
  8. PEPTO BISTHMOL [Concomitant]
     Indication: GASTROOESOPHAGEAL REFLUX DISEASE
  9. METROGEL [Concomitant]
     Indication: ERYTHEMA
  10. TUMS [Concomitant]
     Indication: GASTROOESOPHAGEAL REFLUX DISEASE
  11. SYMBICORT PMDI [Suspect]
     Indication: ASTHMA
     Dosage: 160/4.5, 2 PUFFS TWO TIMES A DAY
     Route: 055
     Dates: start: 20120515
  12. SYMBICORT PMDI [Suspect]
     Indication: CHRONIC OBSTRUCTIVE PULMONARY DISEASE
     Dosage: 160/4.5, 2 PUFFS TWO TIMES A DAY
     Route: 055
     Dates: start: 20120515
  13. NEXIUM [Suspect]
     Indication: GASTROOESOPHAGEAL REFLUX DISEASE
     Route: 048

REACTIONS (3)
  - Hypertension [Unknown]
  - Drug dose omission [Unknown]
  - Off label use [Unknown]
